FAERS Safety Report 7907432-5 (Version None)
Quarter: 2011Q4

REPORT INFORMATION
  Report Type: 
  Country: None (occurrence: None)
  Receive Date: 20111109
  Receipt Date: 20111109
  Transmission Date: 20120403
  Serious: No
  Sender: FDA-Public Use
  Company Number: None

PATIENT
  Sex: Female
  Weight: 54.5 kg

DRUGS (1)
  1. ARM AND HAMMER TRAVEL SIZE (PEROXIDE + BAKING SODA) [Suspect]
     Dosage: USUAL AMOUT DAILY ORAL
     Route: 048
     Dates: start: 20101020, end: 20111026

REACTIONS (5)
  - STOMATITIS [None]
  - GLOSSITIS [None]
  - TONGUE EXFOLIATION [None]
  - ORAL PAIN [None]
  - ORAL DISCOMFORT [None]
